FAERS Safety Report 5448536-9 (Version None)
Quarter: 2007Q3

REPORT INFORMATION
  Report Type: 
  Country: None (occurrence: None)
  Receive Date: 20070911
  Receipt Date: 20070904
  Transmission Date: 20080115
  Serious: Yes (Other)
  Sender: FDA-Public Use
  Company Number: US-ELI_LILLY_AND_COMPANY-US200709000377

PATIENT
  Age: 76 Year
  Sex: Female

DRUGS (2)
  1. FORTEO [Suspect]
     Indication: OSTEOPOROSIS
     Dates: start: 20060601
  2. CALCIUM [Concomitant]
     Indication: OSTEOPOROSIS

REACTIONS (3)
  - BREAST CANCER [None]
  - BREAST MASS [None]
  - BREAST MICROCALCIFICATION [None]
